FAERS Safety Report 9223175 (Version 1)
Quarter: 2013Q1

REPORT INFORMATION
  Report Type: Spontaneous
  Country: US (occurrence: None)
  Receive Date: 20120914
  Receipt Date: 20120914
  Transmission Date: 20140127
  Serious: Yes (Other)
  Sender: FDA-Public Use
  Company Number: JPI-P-016776

PATIENT
  Age: 50 Year
  Sex: Female
  Weight: 73.48 kg

DRUGS (2)
  1. XYREM [Suspect]
     Indication: FIBROMYALGIA
     Route: 048
     Dates: start: 201011
  2. ESTRADIOL [Concomitant]

REACTIONS (4)
  - Panic attack [None]
  - Weight decreased [None]
  - Alopecia [None]
  - Depression [None]
